FAERS Safety Report 6431589-9 (Version None)
Quarter: 2009Q4

REPORT INFORMATION
  Report Type: 
  Country: None (occurrence: None)
  Receive Date: 20091106
  Receipt Date: 20091027
  Transmission Date: 20100525
  Serious: Yes (Other)
  Sender: FDA-Public Use
  Company Number: GB-AMGEN-US372942

PATIENT
  Sex: Female

DRUGS (2)
  1. ENBREL [Suspect]
     Indication: DRUG USE FOR UNKNOWN INDICATION
     Dosage: 25 MG PRE-FILLED SYRINGE 2X WEEKLY
     Route: 058
     Dates: start: 20080101, end: 20091024
  2. ENBREL [Suspect]
     Dosage: 50 MG MYCLIC PEN 1X WEEKLY
     Route: 058
     Dates: start: 20091025

REACTIONS (4)
  - CHOKING SENSATION [None]
  - DIZZINESS [None]
  - THROAT TIGHTNESS [None]
  - VOMITING [None]
